FAERS Safety Report 5339752-5 (Version None)
Quarter: 2007Q2

REPORT INFORMATION
  Report Type: 
  Country: None (occurrence: None)
  Receive Date: 20070525
  Receipt Date: 20070517
  Transmission Date: 20071010
  Serious: Yes (Other)
  Sender: FDA-Public Use
  Company Number: FABR-12001

PATIENT
  Age: 38 Year
  Sex: Female
  Weight: 61.4 kg

DRUGS (1)
  1. FABRAZYME [Suspect]
     Indication: FABRY'S DISEASE
     Dosage: 70 MG Q2WKS IV
     Route: 042
     Dates: start: 20030901, end: 20070301

REACTIONS (1)
  - GRAND MAL CONVULSION [None]
